FAERS Safety Report 4341719-0 (Version None)
Quarter: 2004Q2

REPORT INFORMATION
  Report Type: 
  Country: None (occurrence: None)
  Receive Date: 20040415
  Receipt Date: 20040331
  Transmission Date: 20050107
  Serious: Yes (Other)
  Sender: FDA-Public Use
  Company Number: US_0404102009

PATIENT
  Age: 64 Year
  Sex: Male
  Weight: 81 kg

DRUGS (1)
  1. HUMALOG-HUMAN INSULNI (RDNA): 25% LISPRO, 75% NPL (LI [Suspect]
     Indication: DIABETES MELLITUS
     Dosage: 10 U/3 DAY
     Dates: start: 20010101

REACTIONS (2)
  - DIALYSIS [None]
  - PHARMACEUTICAL PRODUCT COMPLAINT [None]
